FAERS Safety Report 20766951 (Version 1)
Quarter: 2022Q2

REPORT INFORMATION
  Report Type: Spontaneous
  Country: US (occurrence: US)
  Receive Date: 20220429
  Receipt Date: 20220429
  Transmission Date: 20220721
  Serious: Yes (Hospitalization)
  Sender: FDA-Public Use
  Company Number: US-SA-SAC20220419000153

PATIENT
  Age: 76 Year
  Sex: Male

DRUGS (2)
  1. PLAVIX [Suspect]
     Active Substance: CLOPIDOGREL BISULFATE
  2. HUMIRA [Suspect]
     Active Substance: ADALIMUMAB

REACTIONS (4)
  - Skin laceration [Recovering/Resolving]
  - Wound infection [Recovering/Resolving]
  - Epistaxis [Recovered/Resolved]
  - Anaemia [Recovering/Resolving]

NARRATIVE: CASE EVENT DATE: 20211101
